FAERS Safety Report 24025712 (Version 5)
Quarter: 2024Q3

REPORT INFORMATION
  Report Type: Report from Study
  Country: FI (occurrence: FI)
  Receive Date: 20240628
  Receipt Date: 20240710
  Transmission Date: 20241016
  Serious: No
  Sender: ROCHE
  Company Number: FI-ROCHE-3413796

PATIENT
  Age: 75 Year
  Sex: Female

DRUGS (26)
  1. ALECTINIB [Suspect]
     Active Substance: ALECTINIB
     Indication: Non-small cell lung cancer metastatic
     Route: 048
     Dates: start: 20220203
  2. ALECTINIB [Suspect]
     Active Substance: ALECTINIB
     Route: 048
     Dates: start: 20181113
  3. CALCIUM CARBONATE [Concomitant]
     Active Substance: CALCIUM CARBONATE
     Indication: Osteoporosis
     Dosage: BID
     Route: 048
     Dates: end: 20230814
  4. CALCIUM\CHOLECALCIFEROL [Concomitant]
     Active Substance: CALCIUM\CHOLECALCIFEROL
     Indication: Osteoporosis
     Dosage: 2 TABLET
     Route: 048
  5. POTASSIUM CHLORIDE [Concomitant]
     Active Substance: POTASSIUM CHLORIDE
     Indication: Hypokalaemia
     Dosage: TID
     Route: 048
     Dates: end: 20230814
  6. FUROSEMIDE [Concomitant]
     Active Substance: FUROSEMIDE
     Indication: Oedema
     Route: 048
  7. VAGIFEM [Concomitant]
     Active Substance: ESTRADIOL
     Dosage: OTHER, 10 UG, 2 TIMES PER WEEK
     Route: 067
  8. MIRABEGRON [Concomitant]
     Active Substance: MIRABEGRON
     Indication: Urinary tract infection
     Route: 048
  9. XGEVA [Concomitant]
     Active Substance: DENOSUMAB
     Indication: Lung neoplasm malignant
     Dosage: QM
     Route: 058
  10. MIRTAZAPINE [Concomitant]
     Active Substance: MIRTAZAPINE
     Indication: Anxiety
     Route: 048
  11. PANTOPRAZOLE SODIUM [Concomitant]
     Active Substance: PANTOPRAZOLE SODIUM
     Indication: Dyspepsia
     Route: 048
  12. SODIUM PICOSULFATE [Concomitant]
     Active Substance: SODIUM PICOSULFATE
     Indication: Constipation
     Route: 048
  13. LACTULOSE [Concomitant]
     Active Substance: LACTULOSE
     Indication: Constipation
     Route: 048
  14. DIBUCAINE HYDROCHLORIDE\PREDNISOLONE [Concomitant]
     Active Substance: DIBUCAINE HYDROCHLORIDE\PREDNISOLONE
     Indication: Haemorrhoids
     Dosage: OTHER
     Route: 054
  15. PARASETAMOL [Concomitant]
     Indication: Pain
     Route: 048
  16. TEMESTA [Concomitant]
     Indication: Insomnia
     Route: 048
  17. IMOVANE [Concomitant]
     Active Substance: ZOPICLONE
     Indication: Insomnia
     Route: 048
  18. NITROFUR-C [Concomitant]
     Indication: Urinary tract infection
     Dosage: 1 TABLET
     Route: 048
     Dates: start: 20221014
  19. ESTRIOL [Concomitant]
     Active Substance: ESTRIOL
     Indication: Hormone replacement therapy
     Dosage: OTHER
     Route: 067
     Dates: start: 20221014
  20. CERIDAL (FINLAND) [Concomitant]
     Dosage: 1 UNKNOWN, BID
     Route: 067
     Dates: start: 20221103
  21. POTASSIUM CHLORIDE [Concomitant]
     Active Substance: POTASSIUM CHLORIDE
     Indication: Hypokalaemia
     Route: 048
     Dates: start: 20230815
  22. CLOBETASOL [Concomitant]
     Active Substance: CLOBETASOL
     Indication: Lichen sclerosus
     Route: 067
  23. CAPRILON (FINLAND) [Concomitant]
     Route: 042
     Dates: start: 20240316, end: 20240317
  24. PRIMPERAN [Concomitant]
     Active Substance: METOCLOPRAMIDE HYDROCHLORIDE
     Indication: Nausea
     Route: 042
     Dates: start: 20240316
  25. OXYCODONE HYDROCHLORIDE [Concomitant]
     Active Substance: OXYCODONE HYDROCHLORIDE
     Indication: Headache
     Route: 042
     Dates: start: 20240316, end: 20240317
  26. FLAGYL [Concomitant]
     Active Substance: METRONIDAZOLE\METRONIDAZOLE HYDROCHLORIDE
     Route: 067
     Dates: start: 20240329, end: 20240401

REACTIONS (4)
  - Hypotension [Not Recovered/Not Resolved]
  - Fatigue [Not Recovered/Not Resolved]
  - Dizziness [Not Recovered/Not Resolved]
  - Soft tissue injury [Recovering/Resolving]

NARRATIVE: CASE EVENT DATE: 20230727
